FAERS Safety Report 10621612 (Version 1)
Quarter: 2014Q4

REPORT INFORMATION
  Report Type: Spontaneous
  Country: US (occurrence: None)
  Receive Date: 20141201
  Receipt Date: 20141201
  Transmission Date: 20150529
  Serious: Yes (Disabling)
  Sender: FDA-Public Use
  Company Number: None

PATIENT
  Age: 32 Year
  Sex: Female
  Weight: 88.45 kg

DRUGS (1)
  1. FENOFIBRATE. [Suspect]
     Active Substance: FENOFIBRATE
     Indication: BLOOD TRIGLYCERIDES INCREASED
     Route: 048
     Dates: start: 20140910, end: 20141015

REACTIONS (8)
  - Crying [None]
  - Musculoskeletal stiffness [None]
  - Fatigue [None]
  - Insomnia [None]
  - No therapeutic response [None]
  - Pain [None]
  - Muscular weakness [None]
  - Fall [None]

NARRATIVE: CASE EVENT DATE: 20141101
